FAERS Safety Report 4390871-X (Version None)
Quarter: 2004Q2

REPORT INFORMATION
  Report Type: 
  Country: None (occurrence: None)
  Receive Date: 20040630
  Receipt Date: 20040614
  Transmission Date: 20050107
  Serious: Yes (Life-Threatening)
  Sender: FDA-Public Use
  Company Number: 207165

PATIENT
  Age: 18 Year
  Sex: Male
  Weight: 65.5 kg

DRUGS (5)
  1. PROTROPIN [Suspect]
     Indication: HYPOPITUITARISM
     Dosage: 1.75 MG, QD, SUBCUTANEOUS
     Route: 058
     Dates: start: 19970825
  2. DDAVP (DESMOPRESSIN ACETATE) [Concomitant]
  3. SYNTHROID [Concomitant]
  4. CORTEF [Concomitant]
  5. TESTOSTERONE [Concomitant]

REACTIONS (2)
  - CRANIOPHARYNGIOMA [None]
  - NEOPLASM RECURRENCE [None]
